FAERS Safety Report 4618936-5 (Version None)
Quarter: 2005Q2

REPORT INFORMATION
  Report Type: 
  Country: None (occurrence: None)
  Receive Date: 20050302
  Receipt Date: 20040903
  Transmission Date: 20051028
  Serious: Yes (Other)
  Sender: FDA-Public Use
  Company Number: 200420472BWH

PATIENT
  Age: 20 Year
  Sex: Male

DRUGS (2)
  1. TRASYLOL [Suspect]
     Indication: HEART TRANSPLANT
     Dosage: 1 ML, TOTAL DAILY, INTRAVENOUS; ONCE, INTRAVENOUS
     Route: 042
     Dates: start: 20040801
  2. TRASYLOL [Suspect]
     Indication: HEART TRANSPLANT
     Dosage: 1 ML, TOTAL DAILY, INTRAVENOUS; ONCE, INTRAVENOUS
     Route: 042
     Dates: start: 20040801

REACTIONS (4)
  - ANAPHYLACTIC REACTION [None]
  - BLOOD PRESSURE IMMEASURABLE [None]
  - HEART RATE DECREASED [None]
  - VASODILATATION [None]
